FAERS Safety Report 4363055-9 (Version None)
Quarter: 2004Q2

REPORT INFORMATION
  Report Type: 
  Country: None (occurrence: None)
  Receive Date: 20040518
  Receipt Date: 20040405
  Transmission Date: 20050107
  Serious: Yes (Life-Threatening, Other)
  Sender: FDA-Public Use
  Company Number: 2004023505

PATIENT
  Age: 35 Year
  Sex: Female
  Weight: 111.3 kg

DRUGS (5)
  1. RELPAX [Suspect]
     Indication: MIGRAINE
     Dosage: 20 MG (PRN), ORAL
     Route: 048
     Dates: start: 20040324, end: 20040324
  2. ETHYNODIOL DIACETATE (ETYNODIOL DIACETATE) [Concomitant]
  3. INSULIN LISPRO (INSULIN LISPRO) [Concomitant]
  4. POLYTAR LIQUID (CADE OIL, COAL TAR, COAL TAR SOLUTION, OLEYL ALCOHOL) [Concomitant]
  5. ETHINYL ESTRADIOL TAB [Concomitant]

REACTIONS (4)
  - ANGIONEUROTIC OEDEMA [None]
  - OEDEMA MOUTH [None]
  - RASH ERYTHEMATOUS [None]
  - SWOLLEN TONGUE [None]
